FAERS Safety Report 5019169-3 (Version None)
Quarter: 2006Q2

REPORT INFORMATION
  Report Type: 
  Country: None (occurrence: None)
  Receive Date: 20060531
  Receipt Date: 20060516
  Transmission Date: 20061013
  Serious: Yes (Death, Hospitalization)
  Sender: FDA-Public Use
  Company Number: COT_0503_2006

PATIENT
  Age: 33 Year
  Sex: Female
  Weight: 54.4316 kg

DRUGS (7)
  1. VENTAVIS [Suspect]
     Indication: PULMONARY HYPERTENSION
     Dosage: 5 MCG 5 TO 6X/DAY IH
     Route: 055
     Dates: start: 20060125
  2. PROGRAF [Concomitant]
  3. CELLCEPT [Concomitant]
  4. PROCARDIA [Concomitant]
  5. PROTONIX [Concomitant]
  6. PREDNISONE [Concomitant]
  7. ALBUTEROL [Concomitant]

REACTIONS (5)
  - ARTERIAL RUPTURE [None]
  - BRAIN NATRIURETIC PEPTIDE INCREASED [None]
  - CHEST PAIN [None]
  - DYSPNOEA [None]
  - WEIGHT INCREASED [None]
